FAERS Safety Report 6711275-8 (Version None)
Quarter: 2010Q2

REPORT INFORMATION
  Report Type: 
  Country: None (occurrence: None)
  Receive Date: 20100505
  Receipt Date: 20100427
  Transmission Date: 20101027
  Serious: Yes (Hospitalization)
  Sender: FDA-Public Use
  Company Number: US-SANOFI-AVENTIS-2010SA024005

PATIENT
  Age: 78 Year
  Sex: Female

DRUGS (7)
  1. MULTAQ [Suspect]
     Indication: ATRIAL FIBRILLATION
     Route: 065
  2. COUMADIN [Suspect]
     Dosage: 6MG AND 7MG EVERY OTHER DAY
     Route: 065
  3. METOPROLOL [Concomitant]
  4. DIGOXIN [Concomitant]
  5. LOTREL [Concomitant]
  6. IMDUR [Concomitant]
  7. ATORVASTATIN [Concomitant]

REACTIONS (3)
  - DECREASED APPETITE [None]
  - INTERNATIONAL NORMALISED RATIO INCREASED [None]
  - NAUSEA [None]
